FAERS Safety Report 17826160 (Version 1)
Quarter: 2020Q2

REPORT INFORMATION
  Report Type: Spontaneous
  Country: FR (occurrence: FR)
  Receive Date: 20200526
  Receipt Date: 20200526
  Transmission Date: 20200714
  Serious: Yes (Other)
  Sender: FDA-Public Use
  Company Number: FR-CHIESI USA, INC.-FR-2020CHI000335

PATIENT

DRUGS (3)
  1. CANGRELOR [Suspect]
     Active Substance: CANGRELOR
     Indication: STENT PLACEMENT
     Dosage: 30 ?G/KG
     Route: 040
  2. ASPIRIN                            /00002701/ [Concomitant]
     Active Substance: ASPIRIN
     Indication: STENT PLACEMENT
     Dosage: 250 MG, UNK
     Route: 040
  3. CANGRELOR [Suspect]
     Active Substance: CANGRELOR
     Indication: OFF LABEL USE
     Dosage: 4 UNK
     Route: 042

REACTIONS (3)
  - Off label use [Not Recovered/Not Resolved]
  - Intentional product use issue [Not Recovered/Not Resolved]
  - Retroperitoneal haematoma [Unknown]
